FAERS Safety Report 26131974 (Version 2)
Quarter: 2025Q4

REPORT INFORMATION
  Report Type: Spontaneous
  Country: EU (occurrence: EU)
  Receive Date: 20251208
  Receipt Date: 20251218
  Transmission Date: 20260117
  Serious: Yes (Other)
  Sender: TEVA
  Company Number: None

PATIENT
  Age: 30 Year
  Sex: Male
  Weight: 85 kg

DRUGS (2)
  1. OLANZAPINE [Suspect]
     Active Substance: OLANZAPINE
     Indication: Depression
     Dosage: ORAL FOR THE NIGHT; BRAND NAME NOT SPECIFIED
     Route: 048
     Dates: start: 20250401, end: 20251105
  2. OXAZEPAM [Concomitant]
     Active Substance: OXAZEPAM
     Indication: Product used for unknown indication
     Dosage: BRAND NAME NOT SPECIFIED
     Route: 048

REACTIONS (2)
  - Hypertriglyceridaemia [Unknown]
  - Pancreatitis necrotising [Unknown]
